FAERS Safety Report 13423983 (Version 3)
Quarter: 2017Q3

REPORT INFORMATION
  Report Type: Spontaneous
  Country: US (occurrence: US)
  Receive Date: 20170410
  Receipt Date: 20170824
  Transmission Date: 20171127
  Serious: Yes (Other)
  Sender: FDA-Public Use
  Company Number: US-BAYER-2017-067352

PATIENT
  Age: 29 Year
  Sex: Female
  Weight: 46.72 kg

DRUGS (14)
  1. ALBUTEROL SULFATE. [Concomitant]
     Active Substance: ALBUTEROL SULFATE
     Dosage: U 1 UNIT VIA NEB Q 4 TO 6 H PRF WHZ
     Route: 055
     Dates: start: 20170417
  2. DIAZEPAM. [Concomitant]
     Active Substance: DIAZEPAM
     Dosage: UNK
     Dates: start: 20170302
  3. MIRENA [Suspect]
     Active Substance: LEVONORGESTREL
     Indication: CONTRACEPTION
     Dosage: 20 MCG/24HR, CONT
     Route: 015
     Dates: start: 20170124, end: 20170315
  4. TAMSULOSIN [Concomitant]
     Active Substance: TAMSULOSIN
     Dosage: UNK
     Dates: start: 20170418
  5. AMITRIPTYLINE [Concomitant]
     Active Substance: AMITRIPTYLINE
     Dosage: TAKE 4 TABLETS DAILY AT BEDTIME
     Route: 048
     Dates: start: 20170206
  6. GABAPENTIN. [Concomitant]
     Active Substance: GABAPENTIN
     Dosage: UNK
     Dates: start: 20170312
  7. OXYCODONE W/PARACETAMOL [Concomitant]
     Active Substance: ACETAMINOPHEN\OXYCODONE HYDROCHLORIDE
     Dosage: UNK
     Dates: start: 20170331
  8. BUTALBITAL/CAFFEINE/PARACETAMOL/ [Concomitant]
     Dosage: TAKE 1 TABLET EVERY 6-8 HOURS AS NEEDED
     Route: 048
     Dates: start: 20170109
  9. BANOPHEN [Concomitant]
     Active Substance: DIPHENHYDRAMINE HYDROCHLORIDE
     Dosage: UNK
     Dates: start: 20170227
  10. VENTOLIN HFA [Concomitant]
     Active Substance: ALBUTEROL SULFATE
     Dosage: INHALE 2 PUFFS PO Q4 H PRN
     Route: 048
     Dates: start: 20170417
  11. MIRENA [Suspect]
     Active Substance: LEVONORGESTREL
     Indication: MENORRHAGIA
  12. MEGESTROL [Concomitant]
     Active Substance: MEGESTROL
     Dosage: TAKE 1 ML TWICE A DAY BY ORALROUTE FOR 5 DAYS
     Dates: start: 20170123
  13. VALACICLOVIR [Concomitant]
     Active Substance: VALACYCLOVIR HYDROCHLORIDE
     Dosage: 1 DF, QD
     Route: 048
     Dates: start: 20160705
  14. TRAMADOL. [Concomitant]
     Active Substance: TRAMADOL
     Dosage: TK 1 T Q 12 H
     Route: 048
     Dates: start: 20170312

REACTIONS (4)
  - Genital haemorrhage [None]
  - Device expulsion [None]
  - Pelvic pain [None]
  - Breast discharge [None]

NARRATIVE: CASE EVENT DATE: 2017
